FAERS Safety Report 10701043 (Version 2)
Quarter: 2015Q2

REPORT INFORMATION
  Report Type: Report from Study
  Country: GT (occurrence: GT)
  Receive Date: 20150109
  Receipt Date: 20150520
  Transmission Date: 20150821
  Serious: Yes (Other)
  Sender: FDA-Public Use
  Company Number: PHHY2015GT000897

PATIENT
  Age: 36 Year
  Sex: Female

DRUGS (1)
  1. GILENYA [Suspect]
     Active Substance: FINGOLIMOD HYDROCHLORIDE
     Indication: PRODUCT USED FOR UNKNOWN INDICATION
     Dosage: 0.5 MG, UNK
     Route: 065

REACTIONS (13)
  - Syncope [Unknown]
  - Head injury [Unknown]
  - Hypotension [Unknown]
  - Feeling cold [Unknown]
  - Loss of consciousness [Unknown]
  - Nocturia [Unknown]
  - Malaise [Unknown]
  - Asthenia [Unknown]
  - Back injury [Unknown]
  - Hyperhidrosis [Unknown]
  - Tinnitus [Unknown]
  - Gastrointestinal disorder [Unknown]
  - Pain in extremity [Unknown]
